FAERS Safety Report 23232644 (Version 2)
Quarter: 2024Q1

REPORT INFORMATION
  Report Type: Report from Study
  Country: US (occurrence: US)
  Receive Date: 20231128
  Receipt Date: 20240103
  Transmission Date: 20240409
  Serious: No
  Sender: FDA-Public Use
  Company Number: US-JNJFOC-20231110403

PATIENT
  Age: 53 Year
  Sex: Female

DRUGS (2)
  1. SIMPONI [Suspect]
     Active Substance: GOLIMUMAB
     Indication: Ankylosing spondylitis
     Dosage: STRENGTH:50.00 MG / 0.50 ML
     Route: 058
     Dates: start: 20231102
  2. SIMPONI [Suspect]
     Active Substance: GOLIMUMAB
     Indication: Arthritis

REACTIONS (2)
  - Product dose omission issue [Unknown]
  - Device failure [Unknown]

NARRATIVE: CASE EVENT DATE: 20231102
